FAERS Safety Report 6240681-3 (Version None)
Quarter: 2009Q2

REPORT INFORMATION
  Report Type: 
  Country: None (occurrence: None)
  Receive Date: 20090623
  Receipt Date: 20090121
  Transmission Date: 20091009
  Serious: No
  Sender: FDA-Public Use
  Company Number: US-ASTRAZENECA-2009UW01000

PATIENT
  Age: 77 Year
  Sex: Male
  Weight: 76.7 kg

DRUGS (9)
  1. PULMICORT FLEXHALER [Suspect]
     Indication: ASTHMA
     Dosage: 180 MCG ONE PUFF TWICE A DAY
     Route: 055
  2. NORVASC [Concomitant]
  3. ZOCOR [Concomitant]
  4. FLOMAX [Concomitant]
  5. ALBUTEROL [Concomitant]
     Dosage: AS NEEDED
  6. CLARITAN (GENERIC) [Concomitant]
  7. ALLERGY SHOTS [Concomitant]
  8. VITAMINS [Concomitant]
  9. FLONASE GENERIC [Concomitant]

REACTIONS (1)
  - DYSPNOEA [None]
